FAERS Safety Report 7586546-6 (Version None)
Quarter: 2011Q2

REPORT INFORMATION
  Report Type: 
  Country: None (occurrence: None)
  Receive Date: 20110630
  Receipt Date: 20110630
  Transmission Date: 20111010
  Serious: Yes (Other)
  Sender: FDA-Public Use
  Company Number: None

PATIENT
  Age: 58 Year
  Sex: Male
  Weight: 83.9154 kg

DRUGS (2)
  1. LOSARTAN POTASSIUM [Suspect]
     Dosage: 25MG 1XDAY
  2. OMEPRAZOLE [Concomitant]

REACTIONS (5)
  - MUSCLE SPASMS [None]
  - DIARRHOEA [None]
  - PRODUCT CONTAMINATION [None]
  - UNEVALUABLE EVENT [None]
  - OEDEMA PERIPHERAL [None]
